FAERS Safety Report 9862223 (Version 3)
Quarter: 2014Q4

REPORT INFORMATION
  Report Type: Spontaneous
  Country: DK (occurrence: DK)
  Receive Date: 20140203
  Receipt Date: 20141009
  Transmission Date: 20150529
  Serious: Yes (Death, Hospitalization)
  Sender: FDA-Public Use
  Company Number: DK-SA-2014SA010874

PATIENT
  Age: 71 Year
  Sex: Male

DRUGS (7)
  1. PREDNISOLON [Concomitant]
     Active Substance: PREDNISOLONE
  2. FUROSEMIDE. [Concomitant]
     Active Substance: FUROSEMIDE
  3. PARACETAMOL [Concomitant]
     Active Substance: ACETAMINOPHEN
  4. CONTALGIN [Concomitant]
     Active Substance: MORPHINE SULFATE
  5. PANTOPRAZOLE [Concomitant]
     Active Substance: PANTOPRAZOLE SODIUM
  6. KALEORID [Concomitant]
     Active Substance: POTASSIUM CHLORIDE
  7. JEVTANA [Suspect]
     Active Substance: CABAZITAXEL
     Indication: PROSTATE CANCER METASTATIC
     Route: 065
     Dates: start: 20121213, end: 20130129

REACTIONS (10)
  - Large intestinal stenosis [Not Recovered/Not Resolved]
  - Leukocytosis [Unknown]
  - Constipation [Unknown]
  - Diarrhoea [Unknown]
  - Sepsis [Fatal]
  - Seizure [Unknown]
  - Accidental overdose [Fatal]
  - Drug dispensing error [Unknown]
  - Ileus [Fatal]
  - Urinary tract infection [Unknown]

NARRATIVE: CASE EVENT DATE: 201302
